FAERS Safety Report 5398606-9 (Version None)
Quarter: 2007Q3

REPORT INFORMATION
  Report Type: 
  Country: None (occurrence: None)
  Receive Date: 20070725
  Receipt Date: 20070709
  Transmission Date: 20080115
  Serious: Yes (Hospitalization)
  Sender: FDA-Public Use
  Company Number: S07-USA-02927-01

PATIENT
  Age: 84 Year
  Sex: Male

DRUGS (7)
  1. NAMENDA [Suspect]
     Indication: AMNESIA
     Dosage: 5 MCG QD; PO
     Route: 048
     Dates: start: 20060101, end: 20060101
  2. NAMENDA [Suspect]
     Indication: AMNESIA
     Dosage: 5 MG, BID; PO
     Route: 048
     Dates: start: 20060101, end: 20060101
  3. NAMENDA [Suspect]
     Indication: AMNESIA
     Dosage: 15 MG QD; PO
     Route: 048
     Dates: start: 20060101, end: 20060101
  4. NAMENDA [Suspect]
     Indication: AMNESIA
     Dosage: 10 MG BID; PO
     Route: 048
     Dates: start: 20060101, end: 20070709
  5. SYNTHROID [Concomitant]
  6. MULTIVITAMIN (NOS) [Concomitant]
  7. GINKO BILOBA [Concomitant]

REACTIONS (8)
  - CEREBROVASCULAR ACCIDENT [None]
  - CHEST DISCOMFORT [None]
  - DIZZINESS [None]
  - DYSPNOEA [None]
  - GAIT DISTURBANCE [None]
  - HEADACHE [None]
  - HYPOAESTHESIA [None]
  - VOMITING [None]
